FAERS Safety Report 8235754-X (Version None)
Quarter: 2012Q1

REPORT INFORMATION
  Report Type: 
  Country: None (occurrence: None)
  Receive Date: 20120326
  Receipt Date: 20120319
  Transmission Date: 20120608
  Serious: Yes (Other)
  Sender: FDA-Public Use
  Company Number: PHHY2012JP024959

PATIENT
  Sex: Female

DRUGS (7)
  1. EXJADE [Suspect]
     Indication: IRON OVERLOAD
     Dosage: 500 MG, DAILY
     Route: 048
     Dates: start: 20101029, end: 20110428
  2. ALOSENN [Concomitant]
     Dosage: 0.5 G, UNK
     Route: 048
     Dates: start: 20101029, end: 20101112
  3. OPALMON [Concomitant]
     Dosage: 15 UG, UNK
     Route: 048
  4. RED BLOOD CELLS, CONCENTRATED [Concomitant]
     Dosage: 2 U, EVERY 1.5 WEEKS
     Dates: start: 20101029, end: 20110428
  5. NEORAL [Concomitant]
     Indication: MYELODYSPLASTIC SYNDROME
     Dosage: 50 MG, UNK
     Route: 048
     Dates: start: 20101029, end: 20110428
  6. MAGNESIUM OXIDE HEAVY [Concomitant]
     Dosage: 1.2 G, UNK
     Route: 048
     Dates: start: 20101029, end: 20110106
  7. PLATELETS [Concomitant]
     Dosage: UNK
     Dates: start: 20101029, end: 20110428

REACTIONS (6)
  - SEPSIS [None]
  - RED BLOOD CELL COUNT DECREASED [None]
  - HAEMATOCRIT DECREASED [None]
  - HAEMOGLOBIN DECREASED [None]
  - NEUTROPHIL COUNT INCREASED [None]
  - LYMPHOCYTE COUNT DECREASED [None]
